FAERS Safety Report 6151950-X (Version None)
Quarter: 2009Q2

REPORT INFORMATION
  Report Type: 
  Country: None (occurrence: None)
  Receive Date: 20090410
  Receipt Date: 20090402
  Transmission Date: 20091009
  Serious: Yes (Hospitalization)
  Sender: FDA-Public Use
  Company Number: US-GENENTECH-280010

PATIENT
  Sex: Female
  Weight: 63.492 kg

DRUGS (1)
  1. RAPTIVA [Suspect]
     Indication: PSORIASIS
     Dosage: UNK
     Dates: start: 20081201, end: 20090301

REACTIONS (2)
  - ARTHRITIS [None]
  - MIGRAINE [None]
